FAERS Safety Report 8180046-0 (Version None)
Quarter: 2012Q1

REPORT INFORMATION
  Report Type: 
  Country: None (occurrence: None)
  Receive Date: 20120302
  Receipt Date: 20120302
  Transmission Date: 20120608
  Serious: Yes (Other)
  Sender: FDA-Public Use
  Company Number: None

PATIENT
  Age: 6 Year
  Sex: Female

DRUGS (1)
  1. RITALIN [Suspect]

REACTIONS (12)
  - ANHEDONIA [None]
  - PARANOIA [None]
  - NERVOUS SYSTEM DISORDER [None]
  - DISTURBANCE IN ATTENTION [None]
  - INSOMNIA [None]
  - IMPAIRED WORK ABILITY [None]
  - ANXIETY [None]
  - THINKING ABNORMAL [None]
  - DEPRESSION [None]
  - FEELING ABNORMAL [None]
  - ANGER [None]
  - FATIGUE [None]
